FAERS Safety Report 5313643-8 (Version None)
Quarter: 2007Q2

REPORT INFORMATION
  Report Type: 
  Country: None (occurrence: None)
  Receive Date: 20070425
  Receipt Date: 20070412
  Transmission Date: 20071010
  Serious: Yes (Death)
  Sender: FDA-Public Use
  Company Number: 2007BI005334

PATIENT
  Age: 40 Year
  Sex: Female

DRUGS (6)
  1. NATALIZUMAB (NATALIZUMAB) [Suspect]
     Indication: MULTIPLE SCLEROSIS
     Dosage: IV
     Route: 042
     Dates: start: 20061208, end: 20070202
  2. ZOPICLONE [Concomitant]
  3. BACLOFEN [Concomitant]
  4. MIRTAZAPINE [Concomitant]
  5. MAXALT [Concomitant]
  6. PROPAVAN [Concomitant]

REACTIONS (7)
  - ANXIETY [None]
  - COGNITIVE DISORDER [None]
  - COMPLETED SUICIDE [None]
  - INSOMNIA [None]
  - MULTIPLE SCLEROSIS RELAPSE [None]
  - NAUSEA [None]
  - TACHYCARDIA [None]
